FAERS Safety Report 13508395 (Version 1)
Quarter: 2017Q2

REPORT INFORMATION
  Report Type: Report from Study
  Country: BR (occurrence: BR)
  Receive Date: 20170503
  Receipt Date: 20170503
  Transmission Date: 20170830
  Serious: Yes (Death, Hospitalization, Other)
  Sender: FDA-Public Use
  Company Number: BR-ROCHE-1928660

PATIENT

DRUGS (6)
  1. ALTEPLASE [Suspect]
     Active Substance: ALTEPLASE
     Indication: ACUTE MYOCARDIAL INFARCTION
     Dosage: A FRONT-LOADING DOSE OF 15 MG (ALTEPLASE, ACTILYSE) WAS GIVEN AS AN I.V. BOLUS WITH AN INFUSION OF 5
     Route: 040
  2. ASPIRIN. [Suspect]
     Active Substance: ASPIRIN
     Route: 048
  3. RIDOGREL [Suspect]
     Active Substance: RIDOGREL
     Indication: ACUTE MYOCARDIAL INFARCTION
     Route: 040
  4. RIDOGREL [Suspect]
     Active Substance: RIDOGREL
     Route: 048
  5. ASPIRIN. [Suspect]
     Active Substance: ASPIRIN
     Indication: ACUTE MYOCARDIAL INFARCTION
     Route: 042
  6. ASPEGIC [Suspect]
     Active Substance: ASPIRIN DL-LYSINE
     Indication: ACUTE MYOCARDIAL INFARCTION
     Route: 065

REACTIONS (4)
  - Haemorrhagic stroke [Unknown]
  - Haemorrhage [Unknown]
  - Angiopathy [Fatal]
  - Gastrointestinal haemorrhage [Unknown]
